FAERS Safety Report 13256641 (Version 7)
Quarter: 2017Q3

REPORT INFORMATION
  Report Type: Spontaneous
  Country: US (occurrence: US)
  Receive Date: 20170221
  Receipt Date: 20170906
  Transmission Date: 20171127
  Serious: Yes (Hospitalization, Other)
  Sender: FDA-Public Use
  Company Number: US-PFIZER INC-2017074615

PATIENT
  Age: 91 Year
  Sex: Female
  Weight: 42.18 kg

DRUGS (14)
  1. XELJANZ XR [Suspect]
     Active Substance: TOFACITINIB CITRATE
     Indication: ARTHRITIS
     Dosage: 11 MG, DAILY
     Route: 048
     Dates: start: 201608, end: 20170131
  2. SYNTHROID [Concomitant]
     Active Substance: LEVOTHYROXINE SODIUM
     Indication: THYROID DISORDER
     Dosage: 88 MG, 1X/DAY
  3. MELOXICAM. [Concomitant]
     Active Substance: MELOXICAM
     Indication: ARTHRITIS
     Dosage: 15 MG, DAILY
  4. HCTZ [Concomitant]
     Active Substance: HYDROCHLOROTHIAZIDE
     Dosage: 25 MG, DAILY
  5. MEVACOR [Concomitant]
     Active Substance: LOVASTATIN
     Dosage: UNK
  6. ACCUPRIL [Concomitant]
     Active Substance: QUINAPRIL HYDROCHLORIDE
     Dosage: UNK
  7. AVAPRO [Concomitant]
     Active Substance: IRBESARTAN
     Dosage: 150 MG, DAILY
     Route: 048
  8. IRBESARTAN. [Concomitant]
     Active Substance: IRBESARTAN
     Indication: BLOOD PRESSURE MEASUREMENT
     Dosage: UNK UNK, 1X/DAY (150 TABLET ONCE A DAY)
  9. XELJANZ XR [Suspect]
     Active Substance: TOFACITINIB CITRATE
     Indication: RHEUMATOID ARTHRITIS
     Dosage: 11 MG, 1X/DAY
     Dates: start: 201611
  10. LOVASTATIN. [Concomitant]
     Active Substance: LOVASTATIN
     Dosage: 20 MG, DAILY
     Route: 048
  11. PRILOSEC [Concomitant]
     Active Substance: OMEPRAZOLE MAGNESIUM
     Indication: DYSPEPSIA
     Dosage: 40 MG, 1X/DAY
  12. IRBESARTAN. [Concomitant]
     Active Substance: IRBESARTAN
     Indication: BLOOD CHOLESTEROL
  13. LEVACOR [Concomitant]
     Dosage: 1 DF, DAILY
  14. PROLIA [Concomitant]
     Active Substance: DENOSUMAB
     Dosage: UNK (1 DOSE)
     Dates: start: 201609

REACTIONS (3)
  - Femur fracture [Recovered/Resolved with Sequelae]
  - Anaemia [Unknown]
  - Fall [Recovered/Resolved with Sequelae]

NARRATIVE: CASE EVENT DATE: 20170113
